FAERS Safety Report 21511728 (Version 9)
Quarter: 2023Q1

REPORT INFORMATION
  Report Type: Report from Study
  Country: TR (occurrence: None)
  Receive Date: 20221027
  Receipt Date: 20230130
  Transmission Date: 20230417
  Serious: Yes (Hospitalization)
  Sender: FDA-Public Use
  Company Number: TR-ROCHE-3206253

PATIENT
  Age: 53 Year
  Sex: Male
  Weight: 102 kg

DRUGS (17)
  1. ATEZOLIZUMAB [Suspect]
     Active Substance: ATEZOLIZUMAB
     Indication: Small cell lung cancer extensive stage
     Dosage: DOSE LAST STUDY DRUG ADMIN PRIOR AE AND SAE IS 1200 MG, 18/OCT/2022
     Route: 041
     Dates: start: 20220923
  2. CARBOPLATIN [Suspect]
     Active Substance: CARBOPLATIN
     Indication: Small cell lung cancer extensive stage
     Dosage: MOST RECENT DOSE 717.5 MG OF STUDY DRUG PRIOR TO AE AND SAE 18/OCT/2022
     Route: 042
     Dates: start: 20220923
  3. ETOPOSIDE [Suspect]
     Active Substance: ETOPOSIDE
     Indication: Small cell lung cancer extensive stage
     Dosage: MOST RECENT DOSE 212.3 MG OF STUDY DRUG PRIOR TO AE 20/OCT/2022
     Route: 042
     Dates: start: 20220923
  4. RANITIDINE HYDROCHLORIDE [Concomitant]
     Active Substance: RANITIDINE HYDROCHLORIDE
     Indication: Premedication
     Dates: start: 20220923, end: 20220925
  5. RANITIDINE HYDROCHLORIDE [Concomitant]
     Active Substance: RANITIDINE HYDROCHLORIDE
     Dates: start: 20221018, end: 20221020
  6. RANITIDINE HYDROCHLORIDE [Concomitant]
     Active Substance: RANITIDINE HYDROCHLORIDE
     Dates: start: 20221116, end: 20221118
  7. PHENIRAMINE [Concomitant]
     Active Substance: PHENIRAMINE
     Dates: start: 20220923, end: 20220923
  8. PHENIRAMINE [Concomitant]
     Active Substance: PHENIRAMINE
     Dates: start: 20221018, end: 20221018
  9. PHENIRAMINE [Concomitant]
     Active Substance: PHENIRAMINE
     Dates: start: 20221116, end: 20221116
  10. ONDANSETRON [Concomitant]
     Active Substance: ONDANSETRON
     Indication: Premedication
     Dates: start: 20220923, end: 20220925
  11. ONDANSETRON [Concomitant]
     Active Substance: ONDANSETRON
     Dates: start: 20221018, end: 20221020
  12. ONDANSETRON [Concomitant]
     Active Substance: ONDANSETRON
     Dates: start: 20221116, end: 20221118
  13. DEXAMETHASONE [Concomitant]
     Active Substance: DEXAMETHASONE
     Indication: Premedication
     Dates: start: 20220924, end: 20220925
  14. DEXAMETHASONE [Concomitant]
     Active Substance: DEXAMETHASONE
     Dates: start: 20221117, end: 20221118
  15. EMEND [Concomitant]
     Active Substance: APREPITANT
     Indication: Prophylaxis
     Dates: start: 20220923, end: 20220925
  16. EMEND [Concomitant]
     Active Substance: APREPITANT
     Dates: start: 20221018, end: 20221020
  17. EMEND [Concomitant]
     Active Substance: APREPITANT
     Dates: start: 20221116, end: 20221118

REACTIONS (1)
  - Abdominal pain upper [Recovered/Resolved]

NARRATIVE: CASE EVENT DATE: 20221023
